FAERS Safety Report 10155138 (Version 1)
Quarter: 2014Q2

REPORT INFORMATION
  Report Type: Spontaneous
  Country: US (occurrence: None)
  Receive Date: 20140505
  Receipt Date: 20140505
  Transmission Date: 20141212
  Serious: No
  Sender: FDA-Public Use
  Company Number: None

PATIENT
  Age: 24 Year
  Sex: Female
  Weight: 58.97 kg

DRUGS (2)
  1. LAMOTRIGINE 50 MG [Suspect]
     Indication: MIGRAINE
     Dosage: 1 PILL A DAY?ONCE DAILY?TAKEN BY MOUTH
     Route: 048
     Dates: start: 20140406, end: 20140502
  2. LAMOTRIGINE 50 MG [Suspect]
     Indication: CONVULSION
     Dosage: 1 PILL A DAY?ONCE DAILY?TAKEN BY MOUTH
     Route: 048
     Dates: start: 20140406, end: 20140502

REACTIONS (2)
  - Vaginal haemorrhage [None]
  - Muscle spasms [None]
